FAERS Safety Report 5565834-9 (Version None)
Quarter: 2007Q4

REPORT INFORMATION
  Report Type: 
  Country: None (occurrence: None)
  Receive Date: 20071213
  Receipt Date: 20071204
  Transmission Date: 20080405
  Serious: Yes (Death, Life-Threatening)
  Sender: FDA-Public Use
  Company Number: 07H-087-0313534-00

PATIENT
  Age: 63 Year
  Sex: Male

DRUGS (1)
  1. PRECEDEX [Suspect]
     Indication: SEDATIVE THERAPY
     Dosage: INTRAVENOUS
     Route: 042

REACTIONS (2)
  - BRADYCARDIA [None]
  - CARDIAC ARREST [None]
